FAERS Safety Report 8935829 (Version 1)
Quarter: 2012Q4

REPORT INFORMATION
  Report Type: Report from Study
  Country: NE (occurrence: NE)
  Receive Date: 20121130
  Receipt Date: 20121130
  Transmission Date: 20130627
  Serious: Yes (Other)
  Sender: FDA-Public Use
  Company Number: NE-JNJFOC-20121100560

PATIENT

DRUGS (2)
  1. TRAMADOL HYDROCHLORIDE [Suspect]
     Indication: PRODUCT USED FOR UNKNOWN INDICATION
     Route: 048
  2. CAFFEINE [Interacting]
     Indication: PRODUCT USED FOR UNKNOWN INDICATION
     Route: 048

REACTIONS (4)
  - Drug dependence [Unknown]
  - Epilepsy [Unknown]
  - Drug abuse [Unknown]
  - Drug interaction [Unknown]
